FAERS Safety Report 9159263 (Version 2)
Quarter: 2013Q1

REPORT INFORMATION
  Report Type: Spontaneous
  Country: US (occurrence: None)
  Receive Date: 20130212
  Receipt Date: 20130326
  Transmission Date: 20140127
  Serious: Yes (Other)
  Sender: FDA-Public Use
  Company Number: 2013CT000009

PATIENT
  Age: 52 Year
  Sex: Female

DRUGS (15)
  1. KORLYM [Suspect]
     Indication: CUSHING^S SYNDROME
     Route: 048
     Dates: start: 201205
  2. MIFEPREX [Concomitant]
  3. ASPIRIN [Concomitant]
  4. ATENOLOL [Concomitant]
  5. CALCIUM [Concomitant]
  6. VITAMIN D [Concomitant]
  7. DIOVAN [Concomitant]
  8. EFFEXOR XR [Concomitant]
  9. FUROSEMIDE [Concomitant]
  10. LEVEMIR [Concomitant]
  11. METFORMIN [Concomitant]
  12. NOVOLOG [Concomitant]
  13. OMEPRAZOLE [Concomitant]
  14. KCL [Concomitant]
  15. VICODIN [Concomitant]

REACTIONS (2)
  - Vaginal haemorrhage [None]
  - Endometrial hyperplasia [None]
